FAERS Safety Report 6123681-3 (Version None)
Quarter: 2009Q1

REPORT INFORMATION
  Report Type: 
  Country: None (occurrence: None)
  Receive Date: 20090318
  Receipt Date: 20090318
  Transmission Date: 20090719
  Serious: Yes (Life-Threatening)
  Sender: FDA-Public Use
  Company Number: None

PATIENT
  Age: 86 Year
  Sex: Male

DRUGS (1)
  1. CLOPIDOGREL [Suspect]
     Dosage: 75 MG EVERY DAY PO
     Route: 048

REACTIONS (7)
  - ASTHENIA [None]
  - FALL [None]
  - HAEMORRHAGE INTRACRANIAL [None]
  - HEAD INJURY [None]
  - NECK PAIN [None]
  - PYREXIA [None]
  - SUBDURAL HAEMATOMA [None]
